FAERS Safety Report 5245021-4 (Version None)
Quarter: 2007Q1

REPORT INFORMATION
  Report Type: 
  Country: None (occurrence: None)
  Receive Date: 20070221
  Receipt Date: 20070221
  Transmission Date: 20070707
  Serious: No
  Sender: FDA-Public Use
  Company Number: None

PATIENT
  Sex: Female
  Weight: 63.5036 kg

DRUGS (1)
  1. ZESTRIL [Suspect]
     Indication: BLOOD PRESSURE INCREASED
     Dosage: 5 MG DAILY PO
     Route: 048
     Dates: start: 20070214, end: 20070215

REACTIONS (4)
  - CHEST DISCOMFORT [None]
  - HEART RATE INCREASED [None]
  - PHARMACEUTICAL PRODUCT COMPLAINT [None]
  - RESPIRATORY RATE INCREASED [None]
